FAERS Safety Report 8303494-4 (Version None)
Quarter: 2012Q2

REPORT INFORMATION
  Report Type: 
  Country: None (occurrence: None)
  Receive Date: 20120418
  Receipt Date: 20120412
  Transmission Date: 20120825
  Serious: Yes (Hospitalization, Other)
  Sender: FDA-Public Use
  Company Number: 2012SP005035

PATIENT
  Sex: Male

DRUGS (5)
  1. PEGASYS [Suspect]
     Indication: HEPATITIS C
     Dates: start: 20120223
  2. PEGASYS [Suspect]
     Indication: HEPATITIS C
     Dates: start: 20080208, end: 20080225
  3. RIBAVIRIN [Suspect]
     Indication: HEPATITIS C
     Dates: start: 20120223
  4. RIBAVIRIN [Suspect]
     Indication: HEPATITIS C
     Dates: start: 20080208, end: 20080225
  5. COPEGUS [Suspect]
     Indication: HEPATITIS C
     Dates: start: 20080208, end: 20080225

REACTIONS (15)
  - IRRITABLE BOWEL SYNDROME [None]
  - FALL [None]
  - ABDOMINAL PAIN [None]
  - APATHY [None]
  - ABASIA [None]
  - BLOOD POTASSIUM DECREASED [None]
  - VOMITING [None]
  - DEHYDRATION [None]
  - ABDOMINAL PAIN UPPER [None]
  - RENAL PAIN [None]
  - HEAD INJURY [None]
  - MALAISE [None]
  - COLD SWEAT [None]
  - ASTHENIA [None]
  - DIZZINESS [None]
